FAERS Safety Report 9874027 (Version 2)
Quarter: 2014Q1

REPORT INFORMATION
  Report Type: Other
  Country: US (occurrence: US)
  Receive Date: 20140206
  Receipt Date: 20140206
  Transmission Date: 20141002
  Serious: No
  Sender: FDA-Public Use
  Company Number: US-ACORDA-ACO_33862_2013

PATIENT
  Age: 65 Year
  Sex: Female

DRUGS (8)
  1. AMPYRA [Suspect]
     Indication: GAIT DISTURBANCE
     Dosage: 10 MG, BID
     Route: 048
     Dates: start: 201005, end: 20130102
  2. AMPYRA [Suspect]
     Dosage: 10 MG, QD
     Dates: start: 20130103, end: 20130126
  3. AMPYRA [Suspect]
     Dosage: 10 MG, BID
     Route: 065
     Dates: start: 20130202
  4. LYRICA [Concomitant]
     Indication: PAIN
     Dosage: UNK
  5. COPAXONE [Concomitant]
     Indication: MULTIPLE SCLEROSIS
     Dosage: UNK
  6. PROVIGIL [Concomitant]
     Indication: FATIGUE
     Dosage: UNK
  7. BACLOFEN [Concomitant]
     Indication: MUSCLE SPASTICITY
     Dosage: UNK
  8. VITAMINS [Concomitant]
     Indication: PRODUCT USED FOR UNKNOWN INDICATION
     Dosage: UNK

REACTIONS (9)
  - Vitreous floaters [Not Recovered/Not Resolved]
  - Feeling abnormal [Not Recovered/Not Resolved]
  - Fall [Recovered/Resolved]
  - Movement disorder [Not Recovered/Not Resolved]
  - Peroneal nerve palsy [Not Recovered/Not Resolved]
  - Walking aid user [Unknown]
  - Asthenia [Recovered/Resolved]
  - Inappropriate schedule of drug administration [Unknown]
  - Multiple sclerosis [Unknown]
